FAERS Safety Report 9511937 (Version 3)
Quarter: 2017Q1

REPORT INFORMATION
  Report Type: Report from Study
  Country: DE (occurrence: DE)
  Receive Date: 20130910
  Receipt Date: 20170330
  Transmission Date: 20170429
  Serious: Yes (Other)
  Sender: FDA-Public Use
  Company Number: DE-ROCHE-1272046

PATIENT
  Age: 53 Year
  Sex: Female

DRUGS (1)
  1. TOCILIZUMAB [Suspect]
     Active Substance: TOCILIZUMAB
     Indication: RHEUMATOID ARTHRITIS
     Route: 042
     Dates: start: 20130207

REACTIONS (6)
  - Headache [Unknown]
  - Swelling face [Unknown]
  - Productive cough [Unknown]
  - Musculoskeletal stiffness [Unknown]
  - Nausea [Unknown]
  - Epistaxis [Unknown]

NARRATIVE: CASE EVENT DATE: 20130523
